FAERS Safety Report 13424405 (Version 2)
Quarter: 2017Q3

REPORT INFORMATION
  Report Type: Report from Study
  Country: HU (occurrence: HU)
  Receive Date: 20170410
  Receipt Date: 20170731
  Transmission Date: 20171127
  Serious: Yes (Hospitalization)
  Sender: FDA-Public Use
  Company Number: HU-JNJFOC-20170405793

PATIENT
  Age: 41 Year
  Sex: Female
  Weight: 81 kg

DRUGS (4)
  1. LITICARB [Concomitant]
     Active Substance: LITHIUM CARBONATE
     Dosage: 250 MG, EVENINGS
     Route: 065
     Dates: start: 201702
  2. STELARA [Suspect]
     Active Substance: USTEKINUMAB
     Indication: PSORIASIS
     Route: 058
     Dates: start: 20160310
  3. LEPONEX [Concomitant]
     Active Substance: CLOZAPINE
     Dosage: 100 MG IN THE EVENINGS
     Route: 065
     Dates: start: 201701
  4. LEFLUNOMID [Concomitant]
     Active Substance: LEFLUNOMIDE
     Dosage: 10 MG, MORNINGS
     Route: 065
     Dates: start: 20080513

REACTIONS (1)
  - Breast abscess [Recovered/Resolved]

NARRATIVE: CASE EVENT DATE: 20170331
